FAERS Safety Report 8159501-5 (Version None)
Quarter: 2012Q1

REPORT INFORMATION
  Report Type: 
  Country: None (occurrence: None)
  Receive Date: 20120223
  Receipt Date: 20120209
  Transmission Date: 20120608
  Serious: Yes (Hospitalization)
  Sender: FDA-Public Use
  Company Number: US-ROCHE-1038793

PATIENT
  Sex: Female
  Weight: 69.8 kg

DRUGS (10)
  1. ENZASTAURIN [Suspect]
     Route: 048
  2. LISINOPRIL [Concomitant]
     Dates: start: 20090303
  3. VINCRISTINE [Suspect]
     Indication: DIFFUSE LARGE B-CELL LYMPHOMA
     Route: 042
     Dates: start: 20090320, end: 20090710
  4. PREDNISONE TAB [Suspect]
     Indication: DIFFUSE LARGE B-CELL LYMPHOMA
     Route: 048
     Dates: start: 20090320, end: 20090710
  5. CYCLOPHOSPHAMIDE [Suspect]
     Indication: DIFFUSE LARGE B-CELL LYMPHOMA
     Route: 042
     Dates: start: 20090320, end: 20090710
  6. ENZASTAURIN [Suspect]
     Indication: DIFFUSE LARGE B-CELL LYMPHOMA
     Route: 048
     Dates: start: 20090320, end: 20090320
  7. DOXORUBICIN HCL [Suspect]
     Indication: DIFFUSE LARGE B-CELL LYMPHOMA
     Route: 042
     Dates: start: 20090320, end: 20090710
  8. LEVOTHYROXINE SODIUM [Concomitant]
     Dates: start: 20090303
  9. MABTHERA [Suspect]
     Indication: DIFFUSE LARGE B-CELL LYMPHOMA
     Route: 042
     Dates: start: 20090320, end: 20090710
  10. SIMVASTATIN [Concomitant]
     Dates: start: 20090303

REACTIONS (2)
  - FEMORAL NECK FRACTURE [None]
  - FALL [None]
